FAERS Safety Report 12859571 (Version 2)
Quarter: 2016Q4

REPORT INFORMATION
  Report Type: Spontaneous
  Country: TW (occurrence: TW)
  Receive Date: 20161018
  Receipt Date: 20161227
  Transmission Date: 20170207
  Serious: Yes (Other)
  Sender: FDA-Public Use
  Company Number: TW-MYLANLABS-2016M1044205

PATIENT

DRUGS (7)
  1. VALPROIC ACID. [Interacting]
     Active Substance: VALPROIC ACID
     Indication: PSYCHOTIC DISORDER
     Dosage: UNK UNK, HS
     Dates: start: 20131108
  2. TRIHEXYPHENIDYL [Concomitant]
     Active Substance: TRIHEXYPHENIDYL
     Indication: PSYCHOTIC DISORDER
     Dosage: UNK UNK, QD
     Dates: start: 20140512
  3. CLOZAPINE. [Suspect]
     Active Substance: CLOZAPINE
     Dosage: 100 MG, HS
     Dates: start: 20140512, end: 2014
  4. DEXTROMETHORPHAN                   /00048102/ [Concomitant]
     Active Substance: DEXTROMETHORPHAN HYDROBROMIDE
     Indication: PRODUCT USED FOR UNKNOWN INDICATION
     Dosage: 15 MG, TID
  5. ARIPIPRAZOLE. [Concomitant]
     Active Substance: ARIPIPRAZOLE
     Indication: PSYCHOTIC DISORDER
     Dosage: UNK UNK, HS
     Dates: start: 20140512
  6. CLOZAPINE. [Suspect]
     Active Substance: CLOZAPINE
     Indication: SCHIZOPHRENIA
     Dosage: UNK
     Dates: start: 20090113
  7. CLOZAPINE. [Suspect]
     Active Substance: CLOZAPINE
     Dosage: 25 MG, BID
     Dates: start: 20140509

REACTIONS (7)
  - Pleural effusion [Unknown]
  - Salivary hypersecretion [Unknown]
  - Wrong technique in product usage process [Unknown]
  - Labelled drug-drug interaction medication error [Unknown]
  - Pneumonia [Unknown]
  - Pneumonia aspiration [Unknown]
  - White blood cell count increased [Unknown]

NARRATIVE: CASE EVENT DATE: 2014
